FAERS Safety Report 6368303 (Version 3)
Quarter: 2016Q1

REPORT INFORMATION
  Report Type: Spontaneous
  Country: US (occurrence: US)
  Receive Date: 20070726
  Receipt Date: 20160203
  Transmission Date: 20160526
  Serious: Yes (Other)
  Sender: FDA-Public Use
  Company Number: US-AMGEN-KDL223363

PATIENT
  Age: 71 Year
  Sex: Male
  Weight: 68.1 kg

DRUGS (10)
  1. PROCRIT [Suspect]
     Active Substance: ERYTHROPOIETIN
     Indication: MYELODYSPLASTIC SYNDROME
     Dosage: 80000 IU, QWK
     Route: 065
     Dates: start: 2005, end: 20070626
  2. REVLIMID [Suspect]
     Active Substance: LENALIDOMIDE
     Indication: PRODUCT USED FOR UNKNOWN INDICATION
     Dosage: UNK
     Route: 065
  3. VITAMINS NOS [Concomitant]
     Active Substance: VITAMINS
  4. ANTIHYPERTENSIVE MEDICATION NOS [Concomitant]
  5. GASTROINTESTINAL MEDICATION NOS [Concomitant]
  6. LEUKINE [Suspect]
     Active Substance: SARGRAMOSTIM
     Indication: PRODUCT USED FOR UNKNOWN INDICATION
     Dosage: UNK
     Route: 065
  7. GABAPENTIN. [Concomitant]
     Active Substance: GABAPENTIN
  8. FUROSEMIDE. [Concomitant]
     Active Substance: FUROSEMIDE
  9. UNSPECIFIED MEDICATION [Concomitant]
     Active Substance: UNSPECIFIED INGREDIENT
  10. LYRICA [Suspect]
     Active Substance: PREGABALIN
     Indication: PRODUCT USED FOR UNKNOWN INDICATION
     Dosage: UNK
     Route: 065

REACTIONS (8)
  - Pancytopenia [Unknown]
  - Neuropathy peripheral [Unknown]
  - Bone pain [Not Recovered/Not Resolved]
  - Feeling abnormal [Unknown]
  - Influenza like illness [Unknown]
  - Peripheral swelling [Unknown]
  - Therapeutic response decreased [Unknown]
  - White blood cell count abnormal [Not Recovered/Not Resolved]

NARRATIVE: CASE EVENT DATE: 200612
